FAERS Safety Report 9870871 (Version 3)
Quarter: 2014Q1

REPORT INFORMATION
  Report Type: Spontaneous
  Country: JP (occurrence: None)
  Receive Date: 20140203
  Receipt Date: 20140307
  Transmission Date: 20141002
  Serious: Yes (Other)
  Sender: FDA-Public Use
  Company Number: DSJ-2014-01295

PATIENT
  Age: 7 Decade
  Sex: Male

DRUGS (3)
  1. OLMETEC [Suspect]
     Indication: HYPERTENSION
     Dosage: 40MG (20MG, 2 IN 1 D)
  2. ARTIST [Suspect]
     Indication: HYPERTENSION
  3. CRAVIT [Suspect]
     Indication: PNEUMONIA
     Dates: start: 20140105, end: 20140111

REACTIONS (5)
  - Red blood cell count decreased [None]
  - Blood lactate dehydrogenase increased [None]
  - Haemoglobin decreased [None]
  - Haematocrit decreased [None]
  - Pneumonia [None]
